FAERS Safety Report 20034833 (Version 2)
Quarter: 2021Q4

REPORT INFORMATION
  Report Type: Spontaneous
  Country: DE (occurrence: DE)
  Receive Date: 20211104
  Receipt Date: 20211214
  Transmission Date: 20220303
  Serious: Yes (Hospitalization, Other)
  Sender: FDA-Public Use
  Company Number: DE-UCBSA-2021050270

PATIENT
  Sex: Male
  Weight: 2.6 kg

DRUGS (7)
  1. CIMZIA [Suspect]
     Active Substance: CERTOLIZUMAB PEGOL
     Indication: Rheumatoid arthritis
     Dosage: 200 MG, CYCLIC( EVERY 2 WEEKS)
     Route: 064
     Dates: start: 202009, end: 20201007
  2. IBUPROFEN [Concomitant]
     Active Substance: IBUPROFEN
     Indication: Rheumatoid arthritis
     Dosage: UNK
  3. ERELZI [Concomitant]
     Active Substance: ETANERCEPT-SZZS
     Dosage: UNK
  4. PANTOPRAZOLE [Concomitant]
     Active Substance: PANTOPRAZOLE
     Indication: Gastrointestinal disorder
  5. METRONIDAZOLE [Concomitant]
     Active Substance: METRONIDAZOLE
  6. HYDROXYCHLOROQUINE [Concomitant]
     Active Substance: HYDROXYCHLOROQUINE
  7. PREDNISOLONE [Concomitant]
     Active Substance: PREDNISOLONE

REACTIONS (5)
  - Small for dates baby [Not Recovered/Not Resolved]
  - Failure to thrive [Unknown]
  - Maternal exposure during pregnancy [Recovered/Resolved]
  - Maternal exposure before pregnancy [Unknown]
  - Foetal growth restriction [Unknown]

NARRATIVE: CASE EVENT DATE: 20200901
